FAERS Safety Report 8201483-1 (Version None)
Quarter: 2012Q1

REPORT INFORMATION
  Report Type: 
  Country: None (occurrence: None)
  Receive Date: 20120312
  Receipt Date: 20120305
  Transmission Date: 20120608
  Serious: Yes (Other)
  Sender: FDA-Public Use
  Company Number: ES-ROXANE LABORATORIES, INC.-2012-RO-00784RO

PATIENT
  Age: 57 Year
  Sex: Male

DRUGS (10)
  1. PREDNISONE [Suspect]
     Indication: ANTI-NEUTROPHIL CYTOPLASMIC ANTIBODY POSITIVE VASCULITIS
     Dosage: 60 MG
     Route: 048
  2. CYCLOPHOSPHAMIDE [Suspect]
     Indication: ANTI-NEUTROPHIL CYTOPLASMIC ANTIBODY POSITIVE VASCULITIS
     Dosage: 500 MG
     Route: 042
  3. EPOGEN [Suspect]
  4. CYCLOPHOSPHAMIDE [Suspect]
     Dosage: 50 MG
     Route: 048
  5. OMEPRAZOLE [Suspect]
  6. SEVELAMER [Suspect]
  7. CYCLOPHOSPHAMIDE [Suspect]
     Dosage: 750 MG
     Route: 042
  8. METHYLPREDNISOLONE [Suspect]
     Indication: ANTI-NEUTROPHIL CYTOPLASMIC ANTIBODY POSITIVE VASCULITIS
     Dosage: 500 MG
  9. CALCIUM CARBONATE [Suspect]
  10. FUROSEMIDE [Suspect]

REACTIONS (2)
  - PANCREATIC ENZYMES INCREASED [None]
  - HEPATOTOXICITY [None]
